FAERS Safety Report 8200488-4 (Version None)
Quarter: 2012Q1

REPORT INFORMATION
  Report Type: 
  Country: None (occurrence: None)
  Receive Date: 20120312
  Receipt Date: 20120302
  Transmission Date: 20120608
  Serious: Yes (Other)
  Sender: FDA-Public Use
  Company Number: US-BAYER-2011-023475

PATIENT
  Sex: Female
  Weight: 63 kg

DRUGS (6)
  1. YASMIN [Suspect]
     Indication: ACNE
  2. IMITREX [Concomitant]
     Dosage: UNK UNK, PRN
  3. YAZ [Suspect]
     Indication: ACNE
  4. IBUPROFEN (ADVIL) [Concomitant]
     Dosage: UNK UNK, PRN
  5. BENTYL [Concomitant]
  6. IRON [Concomitant]

REACTIONS (12)
  - PAIN [None]
  - ANXIETY [None]
  - INJURY [None]
  - CONSTIPATION [None]
  - ABDOMINAL DISTENSION [None]
  - DIARRHOEA [None]
  - DEPRESSION [None]
  - CHOLECYSTITIS CHRONIC [None]
  - GALLBLADDER DISORDER [None]
  - SCAR [None]
  - FLATULENCE [None]
  - DYSPEPSIA [None]
